FAERS Safety Report 10244203 (Version 1)
Quarter: 2014Q2

REPORT INFORMATION
  Report Type: Spontaneous
  Country: FR (occurrence: FR)
  Receive Date: 20140618
  Receipt Date: 20140618
  Transmission Date: 20141212
  Serious: Yes (Hospitalization)
  Sender: FDA-Public Use
  Company Number: FR-009507513-1406FRA007967

PATIENT
  Age: 62 Year
  Sex: Male

DRUGS (3)
  1. FOSAMAX [Suspect]
     Dosage: UNK
     Route: 048
  2. ZOMETA [Suspect]
     Dosage: 5 DF, UNK
     Route: 065
  3. ACLASTA [Suspect]
     Dosage: 3 DF, UNK
     Route: 065

REACTIONS (1)
  - Osteonecrosis [Unknown]
